FAERS Safety Report 11054960 (Version 2)
Quarter: 2015Q2

REPORT INFORMATION
  Report Type: Spontaneous
  Country: BR (occurrence: BR)
  Receive Date: 20150422
  Receipt Date: 20150423
  Transmission Date: 20150821
  Serious: Yes (Other)
  Sender: FDA-Public Use
  Company Number: BR-PFIZER INC-2015134303

PATIENT
  Age: 68 Year
  Sex: Female
  Weight: 80 kg

DRUGS (2)
  1. DOSTINEX [Suspect]
     Active Substance: CABERGOLINE
     Indication: BLOOD PROLACTIN INCREASED
     Dosage: UNK, 2X/WEEK
     Route: 048
     Dates: start: 1998
  2. DOSTINEX [Suspect]
     Active Substance: CABERGOLINE
     Dosage: UNK, 2X/DAY
     Route: 048

REACTIONS (4)
  - Poor peripheral circulation [Unknown]
  - Peripheral swelling [Unknown]
  - Thrombosis [Not Recovered/Not Resolved]
  - Aneurysm [Unknown]

NARRATIVE: CASE EVENT DATE: 2012
